FAERS Safety Report 7037892-6 (Version None)
Quarter: 2010Q4

REPORT INFORMATION
  Report Type: 
  Country: None (occurrence: None)
  Receive Date: 20101011
  Receipt Date: 20100930
  Transmission Date: 20110411
  Serious: Yes (Hospitalization, Disabling, Other)
  Sender: FDA-Public Use
  Company Number: US-ELI_LILLY_AND_COMPANY-US201010000143

PATIENT
  Sex: Female

DRUGS (4)
  1. HUMALOG [Suspect]
     Indication: DIABETES MELLITUS
     Dosage: 20 U, 3/D
  2. HUMALOG [Suspect]
     Dosage: 20 U, 3/D
  3. HUMALOG [Suspect]
  4. LANTUS [Concomitant]

REACTIONS (10)
  - BLOOD GLUCOSE INCREASED [None]
  - BURNING SENSATION [None]
  - EYE HAEMORRHAGE [None]
  - FALL [None]
  - INTERVERTEBRAL DISC PROTRUSION [None]
  - MOBILITY DECREASED [None]
  - MOTOR DYSFUNCTION [None]
  - NERVE INJURY [None]
  - PAIN [None]
  - SPINAL COLUMN STENOSIS [None]
